FAERS Safety Report 19190156 (Version 2)
Quarter: 2021Q4

REPORT INFORMATION
  Report Type: Spontaneous
  Country: FR (occurrence: FR)
  Receive Date: 20210428
  Receipt Date: 20211006
  Transmission Date: 20220303
  Serious: Yes (Life-Threatening)
  Sender: FDA-Public Use
  Company Number: None

PATIENT
  Age: 42 Year
  Sex: Male

DRUGS (9)
  1. DIAZEPAM [Suspect]
     Active Substance: DIAZEPAM
     Indication: Mixed anxiety and depressive disorder
     Dosage: 10MG - 5MG - 10MG, 25 MG
     Route: 048
     Dates: start: 20201027
  2. INDAPAMIDE [Suspect]
     Active Substance: INDAPAMIDE
     Indication: Product used for unknown indication
     Route: 048
     Dates: start: 20200101
  3. PERINDOPRIL [Suspect]
     Active Substance: PERINDOPRIL
     Indication: Product used for unknown indication
     Route: 048
     Dates: start: 20200101
  4. TERALITHE [Suspect]
     Active Substance: LITHIUM CARBONATE
     Indication: Childhood psychosis
     Dosage: 2.5 DF
     Route: 048
     Dates: start: 20200309, end: 20210312
  5. NALTREXONE [Suspect]
     Active Substance: NALTREXONE
     Indication: Product used for unknown indication
     Dosage: 50 MG
     Route: 048
     Dates: start: 20200323
  6. CYAMEMAZINE [Suspect]
     Active Substance: CYAMEMAZINE
     Indication: Childhood psychosis
     Dosage: 25MG 1-1-1-0?100MG 0-0-0-1, 175 MG
     Route: 048
     Dates: start: 20210129, end: 20210301
  7. BACTRIM [Suspect]
     Active Substance: SULFAMETHOXAZOLE\TRIMETHOPRIM
     Indication: Ear infection
     Dosage: 1 - 0 - 1, 2 DF
     Route: 048
     Dates: start: 20210219, end: 20210301
  8. TOVIAZ [Suspect]
     Active Substance: FESOTERODINE FUMARATE
     Indication: Product used for unknown indication
     Dosage: 4 MG
     Route: 048
     Dates: start: 20191231
  9. HALDOL [Suspect]
     Active Substance: HALOPERIDOL
     Indication: Childhood psychosis
     Dosage: 5MG - 10MG - 5MG
     Route: 048
     Dates: start: 20200319

REACTIONS (1)
  - Subileus [Recovered/Resolved]

NARRATIVE: CASE EVENT DATE: 20210222
